FAERS Safety Report 15008332 (Version 1)
Quarter: 2018Q2

REPORT INFORMATION
  Report Type: Spontaneous
  Country: FR (occurrence: FR)
  Receive Date: 20180613
  Receipt Date: 20180613
  Transmission Date: 20180711
  Serious: Yes (Hospitalization)
  Sender: FDA-Public Use
  Company Number: FR-KALEO, INC.-2014SA091745

PATIENT
  Age: 37 Year
  Sex: Female

DRUGS (5)
  1. AUVI-Q [Suspect]
     Active Substance: EPINEPHRINE
     Indication: HYPERSENSITIVITY
     Route: 042
  2. PROPRANOLOL [Concomitant]
     Active Substance: PROPRANOLOL HYDROCHLORIDE
     Indication: HYPERTHYROIDISM
  3. PREDNISOLONE. [Concomitant]
     Active Substance: PREDNISOLONE
     Indication: HYPERSENSITIVITY
     Route: 048
  4. BUDESONIDE. [Concomitant]
     Active Substance: BUDESONIDE
     Indication: HYPERSENSITIVITY
     Route: 055
  5. NEO MERCAZOLE [Concomitant]
     Active Substance: CARBIMAZOLE
     Indication: HYPERTHYROIDISM

REACTIONS (8)
  - Incorrect route of drug administration [Unknown]
  - Cardiac failure congestive [Recovered/Resolved]
  - Stress cardiomyopathy [Recovered/Resolved]
  - Headache [Recovered/Resolved]
  - Chest discomfort [Recovered/Resolved]
  - Troponin I increased [Recovered/Resolved]
  - Ejection fraction decreased [Recovered/Resolved]
  - Heart rate increased [Recovered/Resolved]
